FAERS Safety Report 10050139 (Version 1)
Quarter: 2014Q1

REPORT INFORMATION
  Report Type: Spontaneous
  Country: US (occurrence: None)
  Receive Date: 20140331
  Receipt Date: 20140331
  Transmission Date: 20141002
  Serious: Yes (Other)
  Sender: FDA-Public Use
  Company Number: None

PATIENT
  Age: 78 Year
  Sex: Female
  Weight: 58.06 kg

DRUGS (1)
  1. ZETIA [Suspect]
     Indication: BLOOD TRIGLYCERIDES INCREASED
     Dosage: 1/2 A TABLE 5  MG.
     Route: 048
     Dates: start: 20140317, end: 20140327

REACTIONS (5)
  - Headache [None]
  - Product quality issue [None]
  - Rhinorrhoea [None]
  - Lacrimation increased [None]
  - Sinusitis [None]
